FAERS Safety Report 5080826-4 (Version None)
Quarter: 2006Q3

REPORT INFORMATION
  Report Type: 
  Country: None (occurrence: None)
  Receive Date: 20060810
  Receipt Date: 20060726
  Transmission Date: 20061208
  Serious: Yes (Hospitalization)
  Sender: FDA-Public Use
  Company Number: 2006BI010764

PATIENT
  Age: 58 Year
  Sex: Female

DRUGS (2)
  1. ZEVALIN [Suspect]
     Indication: NON-HODGKIN'S LYMPHOMA
     Dosage: 1X; IV
     Route: 042
     Dates: start: 20060526, end: 20060526
  2. RITUXIMAB [Concomitant]

REACTIONS (2)
  - BONE MARROW FAILURE [None]
  - HEPATITIS [None]
